FAERS Safety Report 24094630 (Version 2)
Quarter: 2024Q3

REPORT INFORMATION
  Report Type: Report from Study
  Country: JP (occurrence: JP)
  Receive Date: 20240716
  Receipt Date: 20240905
  Transmission Date: 20241017
  Serious: Yes (Death)
  Sender: AKEBIA THERAPEUTICS
  Company Number: JP-MTPC-MTPC2024-0014123

PATIENT
  Age: 63 Year
  Sex: Male
  Weight: 56.4 kg

DRUGS (11)
  1. VADADUSTAT [Suspect]
     Active Substance: VADADUSTAT
     Indication: Nephrogenic anaemia
     Dosage: 300 MILLIGRAM, QD
     Route: 048
     Dates: start: 20220121, end: 20220213
  2. VADADUSTAT [Suspect]
     Active Substance: VADADUSTAT
     Dosage: 150 MILLIGRAM, QD
     Route: 048
     Dates: start: 20220214, end: 20220310
  3. BISOPROLOL FUMARATE [Suspect]
     Active Substance: BISOPROLOL FUMARATE
     Indication: Product used for unknown indication
     Dosage: 5 MILLIGRAM, QD
     Route: 048
  4. FERRIC CITRATE ANHYDROUS [Concomitant]
     Active Substance: FERRIC CITRATE ANHYDROUS
     Indication: Product used for unknown indication
     Dosage: 1500 MILLIGRAM, QD
     Route: 048
     Dates: start: 20220314
  5. ENTRESTO [Concomitant]
     Active Substance: SACUBITRIL\VALSARTAN
     Indication: Product used for unknown indication
     Dosage: 400 MILLIGRAM, QD
     Route: 048
  6. ADALAT [Concomitant]
     Active Substance: NIFEDIPINE
     Indication: Product used for unknown indication
     Dosage: 40 MILLIGRAM, QD
     Route: 048
  7. FOSRENOL [Concomitant]
     Active Substance: LANTHANUM CARBONATE
     Indication: Product used for unknown indication
     Dosage: 500 MILLIGRAM, QD
     Route: 048
     Dates: end: 20220313
  8. FEBUXOSTAT [Concomitant]
     Active Substance: FEBUXOSTAT
     Indication: Illness
     Dosage: 10 MILLIGRAM, QD
     Route: 048
  9. KAYEXALATE [Concomitant]
     Active Substance: SODIUM POLYSTYRENE SULFONATE
     Indication: Illness
     Dosage: 13.08 GRAM, QD
     Route: 048
  10. EVOCALCET [Concomitant]
     Active Substance: EVOCALCET
     Indication: Illness
     Dosage: 4 MILLIGRAM, QD
     Route: 048
  11. LANSOPRAZOLE [Concomitant]
     Active Substance: LANSOPRAZOLE
     Indication: Illness
     Dosage: 15 MILLIGRAM, QD
     Route: 048

REACTIONS (1)
  - Death [Fatal]

NARRATIVE: CASE EVENT DATE: 20220928
